FAERS Safety Report 21420725 (Version 1)
Quarter: 2022Q4

REPORT INFORMATION
  Report Type: Report from Study
  Country: US (occurrence: US)
  Receive Date: 20221007
  Receipt Date: 20221007
  Transmission Date: 20230113
  Serious: Yes (Other)
  Sender: FDA-Public Use
  Company Number: US-ABBVIE-22K-163-4447618-00

PATIENT
  Sex: Male

DRUGS (2)
  1. HUMIRA [Suspect]
     Active Substance: ADALIMUMAB
     Indication: Ankylosing spondylitis
     Route: 058
     Dates: start: 202106
  2. HUMIRA [Suspect]
     Active Substance: ADALIMUMAB
     Route: 058
     Dates: start: 202206

REACTIONS (8)
  - Leukaemia [Unknown]
  - Pain [Recovered/Resolved]
  - Back pain [Unknown]
  - Pain [Unknown]
  - Therapeutic response shortened [Unknown]
  - Injection site bruising [Unknown]
  - Limb discomfort [Unknown]
  - Pain in extremity [Unknown]
